FAERS Safety Report 21671037 (Version 2)
Quarter: 2022Q4

REPORT INFORMATION
  Report Type: Report from Study
  Country: US (occurrence: US)
  Receive Date: 20221202
  Receipt Date: 20221228
  Transmission Date: 20230113
  Serious: No
  Sender: FDA-Public Use
  Company Number: US-ABBVIE-4219183

PATIENT
  Sex: Male

DRUGS (2)
  1. IMBRUVICA [Suspect]
     Active Substance: IBRUTINIB
     Indication: Chronic lymphocytic leukaemia
     Route: 048
     Dates: start: 20191101
  2. IMBRUVICA [Suspect]
     Active Substance: IBRUTINIB
     Indication: Chronic lymphocytic leukaemia
     Route: 048

REACTIONS (8)
  - Arrhythmia [Not Recovered/Not Resolved]
  - Weight decreased [Unknown]
  - Pyrexia [Unknown]
  - Paraesthesia [Unknown]
  - Insomnia [Unknown]
  - Glomerular filtration rate abnormal [Not Recovered/Not Resolved]
  - Chills [Unknown]
  - Neuropathy peripheral [Unknown]
